FAERS Safety Report 6307967-5 (Version None)
Quarter: 2009Q3

REPORT INFORMATION
  Report Type: 
  Country: None (occurrence: None)
  Receive Date: 20090813
  Receipt Date: 20090807
  Transmission Date: 20100115
  Serious: Yes (Other)
  Sender: FDA-Public Use
  Company Number: US-ASTRAZENECA-2009UW21873

PATIENT
  Age: 850 Month
  Sex: Female
  Weight: 65.8 kg

DRUGS (2)
  1. CRESTOR [Suspect]
     Route: 048
  2. ATENOLOL [Concomitant]

REACTIONS (2)
  - BREAST LUMP REMOVAL [None]
  - THROMBOSIS [None]
